FAERS Safety Report 4677418-5 (Version None)
Quarter: 2005Q2

REPORT INFORMATION
  Report Type: 
  Country: None (occurrence: None)
  Receive Date: 20050527
  Receipt Date: 20050527
  Transmission Date: 20051028
  Serious: Yes (Death, Life-Threatening, Hospitalization)
  Sender: FDA-Public Use
  Company Number: None

PATIENT
  Age: 69 Year
  Sex: Male
  Weight: 72.1219 kg

DRUGS (4)
  1. ACYCLOVIR [Suspect]
     Indication: PROPHYLAXIS
     Dosage: 300 MG Q8H  INTRAVENOUS
     Route: 042
     Dates: start: 20050408, end: 20050417
  2. ACYCLOVIR [Suspect]
     Indication: TUMOUR NECROSIS
     Dosage: 300 MG Q8H  INTRAVENOUS
     Route: 042
     Dates: start: 20050408, end: 20050417
  3. CEFIPIME 2G [Suspect]
     Indication: INFECTION
     Dosage: 2G  INTRAVENOUS
     Route: 042
     Dates: start: 20050419, end: 20050420
  4. ALLOPURINOL [Concomitant]

REACTIONS (4)
  - BODY TEMPERATURE INCREASED [None]
  - NEUTROPENIA [None]
  - STAPHYLOCOCCAL INFECTION [None]
  - TOXIC EPIDERMAL NECROLYSIS [None]
